FAERS Safety Report 8223199-8 (Version None)
Quarter: 2012Q1

REPORT INFORMATION
  Report Type: 
  Country: None (occurrence: None)
  Receive Date: 20120321
  Receipt Date: 20120308
  Transmission Date: 20120608
  Serious: Yes (Other)
  Sender: FDA-Public Use
  Company Number: US-ROCHE-783815

PATIENT
  Sex: Male
  Weight: 56.296 kg

DRUGS (2)
  1. ACCUTANE [Suspect]
     Indication: ACNE CYSTIC
     Route: 065
     Dates: start: 19820101, end: 19850101
  2. ACCUTANE [Suspect]
     Dates: start: 19860101, end: 19870101

REACTIONS (9)
  - DERMATITIS [None]
  - DEPRESSION [None]
  - INTESTINAL OBSTRUCTION [None]
  - OSTEOPENIA [None]
  - EMOTIONAL DISTRESS [None]
  - INFLAMMATORY BOWEL DISEASE [None]
  - CROHN'S DISEASE [None]
  - INSOMNIA [None]
  - GALLBLADDER DISORDER [None]
